FAERS Safety Report 9285858 (Version 2)
Quarter: 2013Q2

REPORT INFORMATION
  Report Type: Spontaneous
  Country: TN (occurrence: None)
  Receive Date: 20130507
  Receipt Date: 20130517
  Transmission Date: 20140414
  Serious: Yes (Life-Threatening, Hospitalization)
  Sender: FDA-Public Use
  Company Number: 2013RR-68355

PATIENT
  Age: 18 Month
  Sex: Male

DRUGS (2)
  1. AMOXICILLIN/CLAVULANIC ACID [Suspect]
     Indication: PRODUCTIVE COUGH
  2. OMEPRAZOLE [Concomitant]

REACTIONS (1)
  - Stevens-Johnson syndrome [None]
